FAERS Safety Report 8398285-2 (Version None)
Quarter: 2012Q2

REPORT INFORMATION
  Report Type: 
  Country: None (occurrence: None)
  Receive Date: 20120531
  Receipt Date: 20120523
  Transmission Date: 20120825
  Serious: Yes (Hospitalization)
  Sender: FDA-Public Use
  Company Number: US-MYLANLABS-2012S1010625

PATIENT
  Age: 41 Year
  Sex: Female

DRUGS (3)
  1. PHENYTEK [Suspect]
     Indication: CONVULSION
     Route: 048
  2. DILANTIN [Suspect]
     Indication: CONVULSION
     Route: 048
  3. CALCIUM [Concomitant]
     Dosage: TAKES WITHIN 9 HOURS OF PHENYTOIN PRODUCTS
     Dates: start: 20120501

REACTIONS (3)
  - CONVULSION [None]
  - DRUG INEFFECTIVE [None]
  - ANTICONVULSANT DRUG LEVEL DECREASED [None]
